FAERS Safety Report 5151745-X (Version None)
Quarter: 2006Q4

REPORT INFORMATION
  Report Type: 
  Country: None (occurrence: None)
  Receive Date: 20061107
  Receipt Date: 20061024
  Transmission Date: 20070319
  Serious: Yes (Other)
  Sender: FDA-Public Use
  Company Number: CHNY2006JP03055

PATIENT
  Age: 71 Year

DRUGS (1)
  1. NICOTINE [Suspect]
     Indication: NICOTINE DEPENDENCE
     Dosage: 21 MG, QD, TRANSDERMAL
     Route: 062

REACTIONS (2)
  - ASTHENIA [None]
  - INSOMNIA [None]
